FAERS Safety Report 22702934 (Version 2)
Quarter: 2024Q1

REPORT INFORMATION
  Report Type: Spontaneous
  Country: GR (occurrence: GR)
  Receive Date: 20230713
  Receipt Date: 20240318
  Transmission Date: 20240410
  Serious: Yes (Death, Hospitalization, Other)
  Sender: FDA-Public Use
  Company Number: None

PATIENT
  Age: 39 Year
  Sex: Male
  Weight: 85 kg

DRUGS (6)
  1. COSENTYX [Suspect]
     Active Substance: SECUKINUMAB
     Indication: Psoriatic arthropathy
     Dosage: 300 MILLIGRAM PER MILLILITRE, QMO
     Route: 058
     Dates: start: 20230215
  2. MEDROL [Suspect]
     Active Substance: METHYLPREDNISOLONE
     Indication: Haemolytic anaemia
     Dosage: 3 MG (3MG/CAP)
     Route: 048
     Dates: start: 20110601
  3. NEORAL [Suspect]
     Active Substance: CYCLOSPORINE
     Indication: Haemolytic anaemia
     Dosage: 200 MG, QD
     Route: 048
     Dates: start: 20220531
  4. NEORAL [Suspect]
     Active Substance: CYCLOSPORINE
     Indication: Psoriatic arthropathy
  5. SERTRALINE HYDROCHLORIDE [Concomitant]
     Active Substance: SERTRALINE HYDROCHLORIDE
     Indication: Product used for unknown indication
     Dosage: UNK
     Route: 065
  6. ALLOPURINOL [Concomitant]
     Active Substance: ALLOPURINOL
     Indication: Product used for unknown indication
     Dosage: UNK
     Route: 065

REACTIONS (1)
  - Death [Fatal]

NARRATIVE: CASE EVENT DATE: 20230605
